FAERS Safety Report 12463769 (Version 1)
Quarter: 2016Q2

REPORT INFORMATION
  Report Type: Spontaneous
  Country: US (occurrence: None)
  Receive Date: 20160613
  Receipt Date: 20160613
  Transmission Date: 20160815
  Serious: Yes (Life-Threatening, Hospitalization, Disabling, Other)
  Sender: FDA-Public Use
  Company Number: None

PATIENT
  Age: 55 Year
  Sex: Male
  Weight: 81.65 kg

DRUGS (4)
  1. LIPITOR [Concomitant]
     Active Substance: ATORVASTATIN CALCIUM
  2. ZYPREXA [Concomitant]
     Active Substance: OLANZAPINE
  3. TC-99M EC-20 [Suspect]
     Active Substance: TECHNETIUM TC-99M ETARFOLATIDE
     Indication: CHEST PAIN
     Route: 042
     Dates: start: 20150504, end: 20150504
  4. DIAZAPAN [Concomitant]

REACTIONS (1)
  - Myasthenia gravis crisis [None]

NARRATIVE: CASE EVENT DATE: 20150504
